FAERS Safety Report 10167224 (Version 2)
Quarter: 2014Q2

REPORT INFORMATION
  Report Type: Spontaneous
  Country: US (occurrence: None)
  Receive Date: 20140508
  Receipt Date: 20140519
  Transmission Date: 20141212
  Serious: Yes (Hospitalization)
  Sender: FDA-Public Use
  Company Number: 2014SA054339

PATIENT
  Age: 37 Year
  Sex: Female
  Weight: 58.05 kg

DRUGS (3)
  1. ICY HOT BACK [Suspect]
     Indication: BACK PAIN
     Dates: start: 20140413, end: 20140414
  2. ICY HOT BACK [Suspect]
     Indication: MUSCLE TIGHTNESS
     Dates: start: 20140413, end: 20140414
  3. ALEVE [Concomitant]

REACTIONS (8)
  - Dysstasia [None]
  - Abasia [None]
  - Headache [None]
  - Vomiting [None]
  - Muscular weakness [None]
  - Hypotension [None]
  - Nausea [None]
  - Dizziness [None]
